FAERS Safety Report 19069369 (Version 4)
Quarter: 2021Q2

REPORT INFORMATION
  Report Type: Spontaneous
  Country: US (occurrence: US)
  Receive Date: 20210329
  Receipt Date: 20210423
  Transmission Date: 20210717
  Serious: Yes (Hospitalization)
  Sender: FDA-Public Use
  Company Number: US-SA-2021SA086148

PATIENT
  Age: 51 Year
  Sex: Female

DRUGS (4)
  1. LANTUS SOLOSTAR [Suspect]
     Active Substance: INSULIN GLARGINE
     Indication: TYPE 2 DIABETES MELLITUS
     Dosage: 10 IU, QD
     Route: 065
  2. KEFLEX [Concomitant]
     Active Substance: CEPHALEXIN
     Dosage: UNK
     Route: 065
  3. LANTUS SOLOSTAR [Suspect]
     Active Substance: INSULIN GLARGINE
     Dosage: 40 IU, QD
     Route: 065
  4. NOVOLOG [Concomitant]
     Active Substance: INSULIN ASPART
     Dosage: UNK
     Route: 065

REACTIONS (8)
  - Appendix disorder [Unknown]
  - Urinary tract infection [Unknown]
  - Injection site bruising [Unknown]
  - Product storage error [Unknown]
  - Visual impairment [Unknown]
  - Device issue [Unknown]
  - Hyperglycaemia [Unknown]
  - Intentional product misuse [Unknown]

NARRATIVE: CASE EVENT DATE: 20210309
